FAERS Safety Report 13106472 (Version 1)
Quarter: 2017Q1

REPORT INFORMATION
  Report Type: Spontaneous
  Country: US (occurrence: US)
  Receive Date: 20170111
  Receipt Date: 20170111
  Transmission Date: 20170428
  Serious: Yes (Hospitalization)
  Sender: FDA-Public Use
  Company Number: US-ELI_LILLY_AND_COMPANY-US201701001658

PATIENT
  Sex: Female

DRUGS (19)
  1. HUMULIN R [Suspect]
     Active Substance: INSULIN HUMAN
     Dosage: 3 U, IF BLOOD SUGARS ARE HIGH
     Route: 065
     Dates: start: 1996
  2. HUMULIN R [Suspect]
     Active Substance: INSULIN HUMAN
     Dosage: 3 U, IF BLOOD SUGARS ARE HIGH
     Route: 065
  3. HUMULIN N [Suspect]
     Active Substance: INSULIN HUMAN
     Dosage: 50 U, EACH MORNING
     Route: 065
  4. HUMULIN R [Suspect]
     Active Substance: INSULIN HUMAN
     Dosage: 7 U, AT DINNER
     Route: 065
  5. METOPROLOL. [Concomitant]
     Active Substance: METOPROLOL
  6. HUMULIN N [Suspect]
     Active Substance: INSULIN HUMAN
     Dosage: 20 U, AT DINNER
     Route: 065
     Dates: start: 1996
  7. HUMULIN R [Suspect]
     Active Substance: INSULIN HUMAN
     Dosage: 7 U, AT DINNER
     Route: 065
     Dates: start: 1996
  8. HUMULIN R [Suspect]
     Active Substance: INSULIN HUMAN
     Dosage: 4 U, EACH MORNING
     Route: 065
  9. ISOSORBIDE MONONITRATE. [Concomitant]
     Active Substance: ISOSORBIDE MONONITRATE
  10. HUMULIN N [Suspect]
     Active Substance: INSULIN HUMAN
     Dosage: 20 U, AT DINNER
     Route: 065
  11. PRAVASTATIN. [Concomitant]
     Active Substance: PRAVASTATIN
  12. HYDROCHLOROTH [Concomitant]
     Active Substance: HYDROCHLOROTHIAZIDE
  13. HUMULIN R [Suspect]
     Active Substance: INSULIN HUMAN
     Indication: TYPE 1 DIABETES MELLITUS
     Dosage: 4 U, EACH MORNING
     Route: 065
     Dates: start: 1996
  14. BUPROPION HCL [Concomitant]
     Active Substance: BUPROPION HYDROCHLORIDE
  15. HUMULIN N [Suspect]
     Active Substance: INSULIN HUMAN
     Indication: TYPE 1 DIABETES MELLITUS
     Dosage: 50 U, EACH MORNING
     Route: 065
     Dates: start: 1996
  16. AMLODIPINE [Concomitant]
     Active Substance: AMLODIPINE BESYLATE
  17. LISINOPRIL. [Concomitant]
     Active Substance: LISINOPRIL
  18. CLOPIDOGREL [Concomitant]
     Active Substance: CLOPIDOGREL BISULFATE
  19. PANTOPRAZOLE [Concomitant]
     Active Substance: PANTOPRAZOLE SODIUM

REACTIONS (2)
  - Renal cancer [Unknown]
  - Blood glucose increased [Unknown]
